FAERS Safety Report 10393446 (Version 1)
Quarter: 2014Q3

REPORT INFORMATION
  Report Type: Spontaneous
  Country: DE (occurrence: None)
  Receive Date: 20140815
  Receipt Date: 20140815
  Transmission Date: 20150326
  Serious: Yes (Life-Threatening)
  Sender: FDA-Public Use
  Company Number: FK201403262

PATIENT
  Age: 48 Year
  Sex: Female

DRUGS (14)
  1. PRILOCAIN [Suspect]
     Active Substance: PRILOCAINE
     Indication: ANALGESIC THERAPY
     Route: 014
     Dates: start: 20140604, end: 20140604
  2. CLEXANE (ENOXAPARIN SODIUM) [Concomitant]
     Active Substance: ENOXAPARIN SODIUM
  3. DEXAMETHASONE. [Concomitant]
     Active Substance: DEXAMETHASONE
  4. TRAMAL [Suspect]
     Active Substance: TRAMADOL
     Indication: PRODUCT USED FOR UNKNOWN INDICATION
     Dosage: 100, 2 IN 1 D, ORAL
     Route: 048
     Dates: start: 20140605, end: 20140606
  5. BISOPROLOL [Concomitant]
     Active Substance: BISOPROLOL
  6. PROPOFOL. [Suspect]
     Active Substance: PROPOFOL
     Indication: INDUCTION OF ANAESTHESIA
     Route: 042
     Dates: start: 20140604, end: 20140604
  7. SUFENTA [Suspect]
     Active Substance: SUFENTANIL CITRATE
     Indication: INDUCTION AND MAINTENANCE OF ANAESTHESIA
     Route: 042
     Dates: start: 20140604, end: 20140604
  8. MONOSTEP [Suspect]
     Active Substance: ETHINYL ESTRADIOL\LEVONORGESTREL
     Indication: CONTRACEPTION
     Route: 048
  9. ESMERON (ROCURONIUM BROMIDE) (ROCURONIUM BROMIDE) [Concomitant]
     Active Substance: ROCURONIUM BROMIDE
  10. BUPIVACAINE [Concomitant]
     Active Substance: BUPIVACAINE
  11. THEOPHYLLIN (THEOPHYLLINE) [Concomitant]
  12. PARACETAMOL [Concomitant]
     Active Substance: ACETAMINOPHEN
  13. METAMIZOL (METAMIZOLE MAGNESIUM) [Concomitant]
  14. NOVAMINSULFON [Suspect]
     Active Substance: METAMIZOLE
     Indication: PRODUCT USED FOR UNKNOWN INDICATION
     Route: 048
     Dates: start: 20140605, end: 20140605

REACTIONS (1)
  - Drug-induced liver injury [None]

NARRATIVE: CASE EVENT DATE: 20140606
